FAERS Safety Report 25246058 (Version 1)
Quarter: 2025Q2

REPORT INFORMATION
  Report Type: Spontaneous
  Country: US (occurrence: None)
  Receive Date: 20250427
  Receipt Date: 20250427
  Transmission Date: 20250717
  Serious: Yes (Hospitalization)
  Sender: FDA-CTU
  Company Number: None

PATIENT
  Sex: Male

DRUGS (2)
  1. TEMOZOLOMIDE [Suspect]
     Active Substance: TEMOZOLOMIDE
     Indication: Brain neoplasm malignant
     Dosage: 20 MG DAILY ORAL
     Route: 048
     Dates: start: 20241213
  2. TEMOZOLOMIDE [Suspect]
     Active Substance: TEMOZOLOMIDE
     Indication: Brain neoplasm malignant
     Dosage: 250 MG DAILY ORAL ?
     Route: 048
     Dates: start: 20241213

REACTIONS (3)
  - Weight decreased [None]
  - Fluid intake reduced [None]
  - Loss of consciousness [None]
